FAERS Safety Report 9929570 (Version 1)
Quarter: 2014Q1

REPORT INFORMATION
  Report Type: Spontaneous
  Country: CN (occurrence: CN)
  Receive Date: 20140227
  Receipt Date: 20140227
  Transmission Date: 20141002
  Serious: Yes (Other)
  Sender: FDA-Public Use
  Company Number: CN-PFIZER INC-2014051675

PATIENT
  Age: 57 Year
  Sex: Female

DRUGS (2)
  1. EPIRUBICIN HCL [Suspect]
     Indication: BREAST CANCER
     Dosage: 80MG,THE CYCLE WAS REPEATED EVERY 21 DAYS FOR 6 CYCLES.
     Route: 013
  2. DOCETAXEL [Suspect]
     Indication: BREAST CANCER
     Dosage: 80 MG, THE CYCLE WAS REPEATED EVERY 21 DAYS FOR 6 CYCLES.
     Route: 013

REACTIONS (1)
  - Neurotoxicity [Recovered/Resolved]
